FAERS Safety Report 19709290 (Version 2)
Quarter: 2021Q3

REPORT INFORMATION
  Report Type: Spontaneous
  Country: SI (occurrence: SI)
  Receive Date: 20210817
  Receipt Date: 20210825
  Transmission Date: 20211014
  Serious: Yes (Other)
  Sender: FDA-Public Use
  Company Number: SI-MYLANLABS-2021M1050828

PATIENT
  Sex: Female

DRUGS (5)
  1. ALPELISIB [Concomitant]
     Active Substance: ALPELISIB
     Indication: PRODUCT USED FOR UNKNOWN INDICATION
     Dosage: 300 MILLIGRAM, QD
     Route: 065
  2. SORVASTA [Concomitant]
     Active Substance: ROSUVASTATIN CALCIUM
     Indication: EPILEPSY
     Dosage: 5 MILLIGRAM
     Route: 065
  3. FULVESTRANT. [Concomitant]
     Active Substance: FULVESTRANT
     Indication: PRODUCT USED FOR UNKNOWN INDICATION
     Dosage: 500 MILLIGRAM
     Route: 030
  4. EFECTIN [Concomitant]
     Active Substance: VENLAFAXINE HYDROCHLORIDE
     Indication: ANTIDEPRESSANT THERAPY
     Dosage: 100 MILLIGRAM, QD
     Route: 065
  5. LETROZOLE. [Suspect]
     Active Substance: LETROZOLE
     Indication: BREAST CANCER METASTATIC
     Dosage: 2.5 MILLIGRAM, QD
     Route: 065
     Dates: start: 20200928, end: 20210203

REACTIONS (3)
  - Metastases to liver [Unknown]
  - Liver disorder [Unknown]
  - Disease progression [Unknown]
